FAERS Safety Report 26088940 (Version 2)
Quarter: 2025Q4

REPORT INFORMATION
  Report Type: Spontaneous
  Country: CA (occurrence: CA)
  Receive Date: 20251125
  Receipt Date: 20251226
  Transmission Date: 20260118
  Serious: Yes (Life-Threatening, Hospitalization, Disabling, Other)
  Sender: BRISTOL-MYERS SQUIBB COMPANY
  Company Number: CA-BRISTOL-MYERS SQUIBB COMPANY-2025-154656

PATIENT
  Age: 43 Year
  Sex: Female
  Weight: 68 kg

DRUGS (304)
  1. TRIAMCINOLONE ACETONIDE [Suspect]
     Active Substance: TRIAMCINOLONE ACETONIDE
     Indication: Product used for unknown indication
  2. TRIAMCINOLONE ACETONIDE [Suspect]
     Active Substance: TRIAMCINOLONE ACETONIDE
  3. TRIAMCINOLONE ACETONIDE [Suspect]
     Active Substance: TRIAMCINOLONE ACETONIDE
  4. TRIAMCINOLONE ACETONIDE [Suspect]
     Active Substance: TRIAMCINOLONE ACETONIDE
  5. TRIAMCINOLONE ACETONIDE [Suspect]
     Active Substance: TRIAMCINOLONE ACETONIDE
  6. TRIAMCINOLONE ACETONIDE [Suspect]
     Active Substance: TRIAMCINOLONE ACETONIDE
  7. TRIAMCINOLONE ACETONIDE [Suspect]
     Active Substance: TRIAMCINOLONE ACETONIDE
  8. TRIAMCINOLONE ACETONIDE [Suspect]
     Active Substance: TRIAMCINOLONE ACETONIDE
     Route: 014
  9. TRIAMCINOLONE ACETONIDE [Suspect]
     Active Substance: TRIAMCINOLONE ACETONIDE
     Dosage: SUSPENSION INTRA-ARTICULAR
     Route: 014
  10. TRIAMCINOLONE ACETONIDE [Suspect]
     Active Substance: TRIAMCINOLONE ACETONIDE
  11. TRIAMCINOLONE ACETONIDE [Suspect]
     Active Substance: TRIAMCINOLONE ACETONIDE
  12. ACETAMINOPHEN [Concomitant]
     Active Substance: ACETAMINOPHEN
     Indication: Product used for unknown indication
  13. ADALIMUMAB [Concomitant]
     Active Substance: ADALIMUMAB
     Indication: Product used for unknown indication
     Route: 058
  14. ADALIMUMAB [Concomitant]
     Active Substance: ADALIMUMAB
  15. ADALIMUMAB [Concomitant]
     Active Substance: ADALIMUMAB
  16. AIMOVIG [Concomitant]
     Active Substance: ERENUMAB-AOOE
     Indication: Migraine
  17. AIMOVIG [Concomitant]
     Active Substance: ERENUMAB-AOOE
  18. AIMOVIG [Concomitant]
     Active Substance: ERENUMAB-AOOE
  19. ALENDRONIC ACID [Concomitant]
     Active Substance: ALENDRONIC ACID
     Indication: Rheumatoid arthritis
  20. ALENDRONIC ACID [Concomitant]
     Active Substance: ALENDRONIC ACID
     Route: 048
  21. ALENDRONIC ACID [Concomitant]
     Active Substance: ALENDRONIC ACID
     Route: 048
  22. PANTOPRAZOLE SODIUM ANHYDROUS [Concomitant]
     Active Substance: PANTOPRAZOLE SODIUM ANHYDROUS
     Indication: Product used for unknown indication
  23. PANTOPRAZOLE SODIUM ANHYDROUS [Concomitant]
     Active Substance: PANTOPRAZOLE SODIUM ANHYDROUS
  24. PANTOPRAZOLE SODIUM ANHYDROUS [Concomitant]
     Active Substance: PANTOPRAZOLE SODIUM ANHYDROUS
  25. PANTOPRAZOLE SODIUM ANHYDROUS [Concomitant]
     Active Substance: PANTOPRAZOLE SODIUM ANHYDROUS
  26. PANTOPRAZOLE SODIUM ANHYDROUS [Concomitant]
     Active Substance: PANTOPRAZOLE SODIUM ANHYDROUS
  27. PANTOPRAZOLE SODIUM ANHYDROUS [Concomitant]
     Active Substance: PANTOPRAZOLE SODIUM ANHYDROUS
  28. PANTOPRAZOLE SODIUM ANHYDROUS [Concomitant]
     Active Substance: PANTOPRAZOLE SODIUM ANHYDROUS
  29. PANTOPRAZOLE SODIUM ANHYDROUS [Concomitant]
     Active Substance: PANTOPRAZOLE SODIUM ANHYDROUS
  30. PANTOPRAZOLE SODIUM ANHYDROUS [Concomitant]
     Active Substance: PANTOPRAZOLE SODIUM ANHYDROUS
  31. PANTOPRAZOLE SODIUM ANHYDROUS [Concomitant]
     Active Substance: PANTOPRAZOLE SODIUM ANHYDROUS
  32. PANTOPRAZOLE SODIUM ANHYDROUS [Concomitant]
     Active Substance: PANTOPRAZOLE SODIUM ANHYDROUS
  33. PANTOPRAZOLE SODIUM ANHYDROUS [Concomitant]
     Active Substance: PANTOPRAZOLE SODIUM ANHYDROUS
  34. PANTOPRAZOLE SODIUM ANHYDROUS [Concomitant]
     Active Substance: PANTOPRAZOLE SODIUM ANHYDROUS
  35. PANTOPRAZOLE SODIUM ANHYDROUS [Concomitant]
     Active Substance: PANTOPRAZOLE SODIUM ANHYDROUS
  36. PANTOPRAZOLE SODIUM ANHYDROUS [Concomitant]
     Active Substance: PANTOPRAZOLE SODIUM ANHYDROUS
  37. PANTOPRAZOLE SODIUM ANHYDROUS [Concomitant]
     Active Substance: PANTOPRAZOLE SODIUM ANHYDROUS
  38. PANTOPRAZOLE SODIUM ANHYDROUS [Concomitant]
     Active Substance: PANTOPRAZOLE SODIUM ANHYDROUS
  39. PANTOPRAZOLE SODIUM ANHYDROUS [Concomitant]
     Active Substance: PANTOPRAZOLE SODIUM ANHYDROUS
  40. PANTOPRAZOLE SODIUM ANHYDROUS [Concomitant]
     Active Substance: PANTOPRAZOLE SODIUM ANHYDROUS
  41. PANTOPRAZOLE SODIUM ANHYDROUS [Concomitant]
     Active Substance: PANTOPRAZOLE SODIUM ANHYDROUS
  42. PANTOPRAZOLE SODIUM ANHYDROUS [Concomitant]
     Active Substance: PANTOPRAZOLE SODIUM ANHYDROUS
  43. PANTOPRAZOLE SODIUM ANHYDROUS [Concomitant]
     Active Substance: PANTOPRAZOLE SODIUM ANHYDROUS
  44. PANTOPRAZOLE SODIUM ANHYDROUS [Concomitant]
     Active Substance: PANTOPRAZOLE SODIUM ANHYDROUS
  45. PANTOPRAZOLE SODIUM ANHYDROUS [Concomitant]
     Active Substance: PANTOPRAZOLE SODIUM ANHYDROUS
  46. PANTOPRAZOLE SODIUM ANHYDROUS [Concomitant]
     Active Substance: PANTOPRAZOLE SODIUM ANHYDROUS
  47. PANTOPRAZOLE SODIUM ANHYDROUS [Concomitant]
     Active Substance: PANTOPRAZOLE SODIUM ANHYDROUS
  48. PANTOPRAZOLE SODIUM ANHYDROUS [Concomitant]
     Active Substance: PANTOPRAZOLE SODIUM ANHYDROUS
  49. PANTOPRAZOLE SODIUM ANHYDROUS [Concomitant]
     Active Substance: PANTOPRAZOLE SODIUM ANHYDROUS
  50. PANTOPRAZOLE SODIUM ANHYDROUS [Concomitant]
     Active Substance: PANTOPRAZOLE SODIUM ANHYDROUS
  51. PANTOPRAZOLE SODIUM ANHYDROUS [Concomitant]
     Active Substance: PANTOPRAZOLE SODIUM ANHYDROUS
  52. PREDNISONE [Concomitant]
     Active Substance: PREDNISONE
     Indication: Product used for unknown indication
  53. APREMILAST [Concomitant]
     Active Substance: APREMILAST
     Indication: Product used for unknown indication
  54. ARAVA [Concomitant]
     Active Substance: LEFLUNOMIDE
     Indication: Product used for unknown indication
  55. CAFFEINE CITRATE [Concomitant]
     Active Substance: CAFFEINE CITRATE
     Indication: Product used for unknown indication
  56. CALCIUM CARBONATE [Concomitant]
     Active Substance: CALCIUM CARBONATE
     Indication: Product used for unknown indication
  57. CALCIUM CARBONATE [Concomitant]
     Active Substance: CALCIUM CARBONATE
  58. CALCIUM CARBONATE [Concomitant]
     Active Substance: CALCIUM CARBONATE
  59. CALCIUM GLUCONATE [Concomitant]
     Active Substance: CALCIUM GLUCONATE
     Indication: Product used for unknown indication
  60. CANDESARTAN CILEXETIL [Concomitant]
     Active Substance: CANDESARTAN CILEXETIL
     Indication: Migraine
     Route: 048
  61. CANDESARTAN CILEXETIL [Concomitant]
     Active Substance: CANDESARTAN CILEXETIL
     Route: 048
  62. CANDESARTAN CILEXETIL [Concomitant]
     Active Substance: CANDESARTAN CILEXETIL
     Route: 048
  63. CELEBREX [Concomitant]
     Active Substance: CELECOXIB
     Indication: Product used for unknown indication
  64. CERTOLIZUMAB PEGOL [Concomitant]
     Active Substance: CERTOLIZUMAB PEGOL
     Indication: Product used for unknown indication
  65. CETIRIZINE [Concomitant]
     Active Substance: CETIRIZINE HYDROCHLORIDE
     Indication: Product used for unknown indication
  66. CETIRIZINE [Concomitant]
     Active Substance: CETIRIZINE HYDROCHLORIDE
  67. CETIRIZINE [Concomitant]
     Active Substance: CETIRIZINE HYDROCHLORIDE
  68. CETIRIZINE [Concomitant]
     Active Substance: CETIRIZINE HYDROCHLORIDE
  69. CETIRIZINE [Concomitant]
     Active Substance: CETIRIZINE HYDROCHLORIDE
  70. CETIRIZINE [Concomitant]
     Active Substance: CETIRIZINE HYDROCHLORIDE
  71. CETIRIZINE [Concomitant]
     Active Substance: CETIRIZINE HYDROCHLORIDE
  72. CETIRIZINE HYDROCHLORIDE [Concomitant]
     Active Substance: CETIRIZINE HYDROCHLORIDE
     Indication: Product used for unknown indication
  73. CETIRIZINE HYDROCHLORIDE [Concomitant]
     Active Substance: CETIRIZINE HYDROCHLORIDE
  74. CETIRIZINE HYDROCHLORIDE [Concomitant]
     Active Substance: CETIRIZINE HYDROCHLORIDE
  75. CODEINE [Concomitant]
     Active Substance: CODEINE
     Indication: Product used for unknown indication
  76. COSENTYX [Concomitant]
     Active Substance: SECUKINUMAB
     Indication: Rheumatoid arthritis
  77. COSENTYX [Concomitant]
     Active Substance: SECUKINUMAB
     Indication: Psoriatic arthropathy
  78. COSENTYX [Concomitant]
     Active Substance: SECUKINUMAB
  79. COSENTYX [Concomitant]
     Active Substance: SECUKINUMAB
  80. CYANOCOBALAMIN [Concomitant]
     Active Substance: CYANOCOBALAMIN
     Indication: Product used for unknown indication
  81. DESOXIMETASONE [Concomitant]
     Active Substance: DESOXIMETASONE
     Indication: Product used for unknown indication
  82. DESOXIMETASONE [Concomitant]
     Active Substance: DESOXIMETASONE
  83. DESOXIMETASONE [Concomitant]
     Active Substance: DESOXIMETASONE
  84. DESOXIMETASONE [Concomitant]
     Active Substance: DESOXIMETASONE
  85. DESOXIMETASONE [Concomitant]
     Active Substance: DESOXIMETASONE
  86. DESOXIMETASONE [Concomitant]
     Active Substance: DESOXIMETASONE
  87. DESOXIMETASONE [Concomitant]
     Active Substance: DESOXIMETASONE
  88. DESOXIMETASONE [Concomitant]
     Active Substance: DESOXIMETASONE
  89. DESOXIMETASONE [Concomitant]
     Active Substance: DESOXIMETASONE
  90. DESOXIMETASONE [Concomitant]
     Active Substance: DESOXIMETASONE
  91. DESOXIMETASONE [Concomitant]
     Active Substance: DESOXIMETASONE
  92. DESOXIMETASONE [Concomitant]
     Active Substance: DESOXIMETASONE
  93. DESOXIMETASONE [Concomitant]
     Active Substance: DESOXIMETASONE
  94. DICLOFENAC POTASSIUM [Concomitant]
     Active Substance: DICLOFENAC POTASSIUM
     Indication: Product used for unknown indication
  95. DICLOFENAC SODIUM [Concomitant]
     Active Substance: DICLOFENAC SODIUM
     Indication: Product used for unknown indication
  96. DICLOFENAC SODIUM [Concomitant]
     Active Substance: DICLOFENAC SODIUM
  97. DICLOFENAC SODIUM [Concomitant]
     Active Substance: DICLOFENAC SODIUM
  98. DOMPERIDONE\PANTOPRAZOLE SODIUM [Concomitant]
     Active Substance: DOMPERIDONE\PANTOPRAZOLE SODIUM
     Indication: Product used for unknown indication
     Dosage: 121.0 DAYS
  99. DOMPERIDONE\PANTOPRAZOLE SODIUM [Concomitant]
     Active Substance: DOMPERIDONE\PANTOPRAZOLE SODIUM
  100. DOMPERIDONE\PANTOPRAZOLE SODIUM [Concomitant]
     Active Substance: DOMPERIDONE\PANTOPRAZOLE SODIUM
  101. DOMPERIDONE\PANTOPRAZOLE SODIUM [Concomitant]
     Active Substance: DOMPERIDONE\PANTOPRAZOLE SODIUM
  102. DOMPERIDONE\PANTOPRAZOLE SODIUM [Concomitant]
     Active Substance: DOMPERIDONE\PANTOPRAZOLE SODIUM
  103. DOMPERIDONE\PANTOPRAZOLE SODIUM [Concomitant]
     Active Substance: DOMPERIDONE\PANTOPRAZOLE SODIUM
  104. ENBREL [Concomitant]
     Active Substance: ETANERCEPT
     Indication: Product used for unknown indication
  105. ERELZI [Concomitant]
     Active Substance: ETANERCEPT-SZZS
     Indication: Rheumatoid arthritis
  106. ERELZI [Concomitant]
     Active Substance: ETANERCEPT-SZZS
  107. ERELZI [Concomitant]
     Active Substance: ETANERCEPT-SZZS
  108. ERENUMAB [Concomitant]
     Active Substance: ERENUMAB
     Indication: Migraine
  109. FETZIMA [Concomitant]
     Active Substance: LEVOMILNACIPRAN HYDROCHLORIDE
     Indication: Product used for unknown indication
  110. FETZIMA [Concomitant]
     Active Substance: LEVOMILNACIPRAN HYDROCHLORIDE
  111. FETZIMA [Concomitant]
     Active Substance: LEVOMILNACIPRAN HYDROCHLORIDE
  112. FINACEA [Concomitant]
     Active Substance: AZELAIC ACID
     Indication: Product used for unknown indication
  113. FOLIC ACID [Concomitant]
     Active Substance: FOLIC ACID
     Indication: Rheumatoid arthritis
  114. FOLIC ACID [Concomitant]
     Active Substance: FOLIC ACID
     Route: 048
  115. FOLIC ACID [Concomitant]
     Active Substance: FOLIC ACID
  116. FOLIC ACID [Concomitant]
     Active Substance: FOLIC ACID
  117. FOLIC ACID [Concomitant]
     Active Substance: FOLIC ACID
  118. FOLIC ACID [Concomitant]
     Active Substance: FOLIC ACID
  119. FOLIC ACID [Concomitant]
     Active Substance: FOLIC ACID
  120. FOLIC ACID [Concomitant]
     Active Substance: FOLIC ACID
     Route: 048
  121. FOLIC ACID [Concomitant]
     Active Substance: FOLIC ACID
     Route: 048
  122. FOLIC ACID [Concomitant]
     Active Substance: FOLIC ACID
     Route: 048
  123. FOLIC ACID [Concomitant]
     Active Substance: FOLIC ACID
     Route: 048
  124. FOLIC ACID [Concomitant]
     Active Substance: FOLIC ACID
     Route: 058
  125. FOLIC ACID [Concomitant]
     Active Substance: FOLIC ACID
     Route: 048
  126. FOLIC ACID [Concomitant]
     Active Substance: FOLIC ACID
  127. FOLIC ACID [Concomitant]
     Active Substance: FOLIC ACID
  128. FOLIC ACID [Concomitant]
     Active Substance: FOLIC ACID
     Route: 048
  129. FOLIC ACID [Concomitant]
     Active Substance: FOLIC ACID
  130. FOLIC ACID [Concomitant]
     Active Substance: FOLIC ACID
     Route: 048
  131. FOLIC ACID [Concomitant]
     Active Substance: FOLIC ACID
  132. GOLIMUMAB [Concomitant]
     Active Substance: GOLIMUMAB
     Indication: Product used for unknown indication
  133. HUMIRA [Concomitant]
     Active Substance: ADALIMUMAB
     Indication: Product used for unknown indication
     Dosage: SOLUTION SUBCUTANEOUS
     Route: 058
  134. HYDROCORTISONE [Concomitant]
     Active Substance: HYDROCORTISONE
     Indication: Product used for unknown indication
  135. HYDROXYCHLOROQUINE SULFATE [Concomitant]
     Active Substance: HYDROXYCHLOROQUINE SULFATE
     Indication: Product used for unknown indication
  136. HYRIMOZ [Concomitant]
     Active Substance: ADALIMUMAB-ADAZ
     Indication: Product used for unknown indication
     Dosage: SOLUTION SUBCUTANEOUS
     Route: 058
  137. IBUPROFEN [Concomitant]
     Active Substance: IBUPROFEN
     Indication: Product used for unknown indication
  138. LAMICTAL [Concomitant]
     Active Substance: LAMOTRIGINE
     Indication: Product used for unknown indication
     Route: 048
  139. LAMICTAL [Concomitant]
     Active Substance: LAMOTRIGINE
     Route: 048
  140. LAMICTAL [Concomitant]
     Active Substance: LAMOTRIGINE
  141. LAMICTAL [Concomitant]
     Active Substance: LAMOTRIGINE
     Route: 048
  142. LAMICTAL [Concomitant]
     Active Substance: LAMOTRIGINE
     Route: 048
  143. LAMICTAL [Concomitant]
     Active Substance: LAMOTRIGINE
     Route: 048
  144. LAMICTAL [Concomitant]
     Active Substance: LAMOTRIGINE
     Route: 048
  145. LAMICTAL [Concomitant]
     Active Substance: LAMOTRIGINE
     Route: 048
  146. LAMICTAL [Concomitant]
     Active Substance: LAMOTRIGINE
     Route: 048
  147. LAMICTAL [Concomitant]
     Active Substance: LAMOTRIGINE
     Route: 048
  148. LAMICTAL [Concomitant]
     Active Substance: LAMOTRIGINE
     Route: 048
  149. LAMICTAL [Concomitant]
     Active Substance: LAMOTRIGINE
     Route: 048
  150. LAMICTAL [Concomitant]
     Active Substance: LAMOTRIGINE
     Route: 048
  151. LAMICTAL [Concomitant]
     Active Substance: LAMOTRIGINE
     Route: 048
  152. LAMICTAL [Concomitant]
     Active Substance: LAMOTRIGINE
     Route: 048
  153. LAMICTAL [Concomitant]
     Active Substance: LAMOTRIGINE
     Route: 048
  154. LEFLUNOMIDE [Concomitant]
     Active Substance: LEFLUNOMIDE
     Indication: Rheumatoid arthritis
  155. LEFLUNOMIDE [Concomitant]
     Active Substance: LEFLUNOMIDE
  156. LEFLUNOMIDE [Concomitant]
     Active Substance: LEFLUNOMIDE
  157. LEFLUNOMIDE [Concomitant]
     Active Substance: LEFLUNOMIDE
  158. LEFLUNOMIDE [Concomitant]
     Active Substance: LEFLUNOMIDE
  159. LEFLUNOMIDE [Concomitant]
     Active Substance: LEFLUNOMIDE
  160. LEFLUNOMIDE [Concomitant]
     Active Substance: LEFLUNOMIDE
  161. LEFLUNOMIDE [Concomitant]
     Active Substance: LEFLUNOMIDE
  162. LEFLUNOMIDE [Concomitant]
     Active Substance: LEFLUNOMIDE
  163. LEFLUNOMIDE [Concomitant]
     Active Substance: LEFLUNOMIDE
  164. LISINOPRIL [Concomitant]
     Active Substance: LISINOPRIL
     Indication: Product used for unknown indication
  165. MAGNESIUM [Concomitant]
     Active Substance: MAGNESIUM
     Indication: Product used for unknown indication
  166. MAGNESIUM [Concomitant]
     Active Substance: MAGNESIUM
  167. MAGNESIUM CARBONATE [Concomitant]
     Active Substance: MAGNESIUM CARBONATE
     Indication: Product used for unknown indication
  168. MAGNESIUM CITRATE [Concomitant]
     Active Substance: MAGNESIUM CITRATE
     Indication: Product used for unknown indication
  169. MAGNESIUM CITRATE [Concomitant]
     Active Substance: MAGNESIUM CITRATE
  170. MAGNESIUM HYDROXIDE [Concomitant]
     Active Substance: MAGNESIUM HYDROXIDE
     Indication: Product used for unknown indication
  171. MAGNESIUM HYDROXIDE [Concomitant]
     Active Substance: MAGNESIUM HYDROXIDE
  172. MAGNESIUM HYDROXIDE [Concomitant]
     Active Substance: MAGNESIUM HYDROXIDE
  173. METHOTREXATE [Concomitant]
     Active Substance: METHOTREXATE
     Indication: Rheumatoid arthritis
  174. METHOTREXATE [Concomitant]
     Active Substance: METHOTREXATE
     Indication: Psoriatic arthropathy
     Route: 048
  175. METHOTREXATE [Concomitant]
     Active Substance: METHOTREXATE
  176. METHOTREXATE [Concomitant]
     Active Substance: METHOTREXATE
     Route: 048
  177. METHOTREXATE [Concomitant]
     Active Substance: METHOTREXATE
  178. METHOTREXATE [Concomitant]
     Active Substance: METHOTREXATE
     Route: 048
  179. METHOTREXATE [Concomitant]
     Active Substance: METHOTREXATE
  180. METHOTREXATE [Concomitant]
     Active Substance: METHOTREXATE
     Route: 048
  181. METHOTREXATE [Concomitant]
     Active Substance: METHOTREXATE
  182. METHOTREXATE [Concomitant]
     Active Substance: METHOTREXATE
  183. METHOTREXATE [Concomitant]
     Active Substance: METHOTREXATE
     Route: 048
  184. METHOTREXATE [Concomitant]
     Active Substance: METHOTREXATE
  185. METHOTREXATE [Concomitant]
     Active Substance: METHOTREXATE
     Route: 048
  186. METHOTREXATE [Concomitant]
     Active Substance: METHOTREXATE
  187. METHOTREXATE [Concomitant]
     Active Substance: METHOTREXATE
  188. METHOTREXATE [Concomitant]
     Active Substance: METHOTREXATE
     Route: 048
  189. METHOTREXATE [Concomitant]
     Active Substance: METHOTREXATE
  190. METHOTREXATE [Concomitant]
     Active Substance: METHOTREXATE
  191. METHOTREXATE [Concomitant]
     Active Substance: METHOTREXATE
     Route: 048
  192. METHOTREXATE [Concomitant]
     Active Substance: METHOTREXATE
  193. METHOTREXATE [Concomitant]
     Active Substance: METHOTREXATE
  194. METHOTREXATE [Concomitant]
     Active Substance: METHOTREXATE
  195. METHOTREXATE [Concomitant]
     Active Substance: METHOTREXATE
     Route: 048
  196. METHOTREXATE [Concomitant]
     Active Substance: METHOTREXATE
     Route: 048
  197. METHOTREXATE [Concomitant]
     Active Substance: METHOTREXATE
  198. METHOTREXATE [Concomitant]
     Active Substance: METHOTREXATE
  199. METHOTREXATE [Concomitant]
     Active Substance: METHOTREXATE
  200. METHOTREXATE [Concomitant]
     Active Substance: METHOTREXATE
     Route: 048
  201. METHOTREXATE [Concomitant]
     Active Substance: METHOTREXATE
  202. METHOTREXATE [Concomitant]
     Active Substance: METHOTREXATE
     Route: 048
  203. METHOTREXATE [Concomitant]
     Active Substance: METHOTREXATE
  204. METHOTREXATE [Concomitant]
     Active Substance: METHOTREXATE
     Route: 048
  205. METHOTREXATE [Concomitant]
     Active Substance: METHOTREXATE
  206. METHOTREXATE [Concomitant]
     Active Substance: METHOTREXATE
     Route: 048
  207. METHOTREXATE [Concomitant]
     Active Substance: METHOTREXATE
     Route: 048
  208. METHOTREXATE [Concomitant]
     Active Substance: METHOTREXATE
  209. METHOTREXATE [Concomitant]
     Active Substance: METHOTREXATE
  210. METHOTREXATE [Concomitant]
     Active Substance: METHOTREXATE
     Route: 048
  211. METHOTREXATE [Concomitant]
     Active Substance: METHOTREXATE
     Route: 048
  212. METHOTREXATE [Concomitant]
     Active Substance: METHOTREXATE
  213. METHOTREXATE [Concomitant]
     Active Substance: METHOTREXATE
  214. METHOTREXATE [Concomitant]
     Active Substance: METHOTREXATE
  215. METHOTREXATE [Concomitant]
     Active Substance: METHOTREXATE
     Route: 013
  216. METHOTREXATE [Concomitant]
     Active Substance: METHOTREXATE
     Route: 048
  217. METHOTREXATE [Concomitant]
     Active Substance: METHOTREXATE
  218. MYRBETRIQ [Concomitant]
     Active Substance: MIRABEGRON
     Indication: Product used for unknown indication
     Route: 048
  219. MYRBETRIQ [Concomitant]
     Active Substance: MIRABEGRON
     Dosage: TABLET (EXTENDED RELEASE)
     Route: 048
  220. MYRBETRIQ [Concomitant]
     Active Substance: MIRABEGRON
     Route: 048
  221. MYRBETRIQ [Concomitant]
     Active Substance: MIRABEGRON
     Route: 048
  222. MYRBETRIQ [Concomitant]
     Active Substance: MIRABEGRON
     Route: 048
  223. MYRBETRIQ [Concomitant]
     Active Substance: MIRABEGRON
     Route: 048
  224. NAPROXEN [Concomitant]
     Active Substance: NAPROXEN
     Indication: Product used for unknown indication
  225. NAPROXEN [Concomitant]
     Active Substance: NAPROXEN
  226. NAPROXEN [Concomitant]
     Active Substance: NAPROXEN
  227. NAPROXEN [Concomitant]
     Active Substance: NAPROXEN
  228. NAPROXEN [Concomitant]
     Active Substance: NAPROXEN
  229. NAPROXEN [Concomitant]
     Active Substance: NAPROXEN
  230. NAPROXEN [Concomitant]
     Active Substance: NAPROXEN
  231. NAPROXEN [Concomitant]
     Active Substance: NAPROXEN
  232. NAPROXEN [Concomitant]
     Active Substance: NAPROXEN
  233. NAPROXEN [Concomitant]
     Active Substance: NAPROXEN
  234. NAPROXEN [Concomitant]
     Active Substance: NAPROXEN
  235. NAPROXEN SODIUM [Concomitant]
     Active Substance: NAPROXEN SODIUM
     Indication: Product used for unknown indication
  236. PHOSPHORUS [Concomitant]
     Active Substance: PHOSPHORUS
     Indication: Product used for unknown indication
  237. PHOSPHORUS [Concomitant]
     Active Substance: PHOSPHORUS
  238. PHOSPHORUS [Concomitant]
     Active Substance: PHOSPHORUS
  239. PSEUDOEPHEDRINE HYDROCHLORIDE [Concomitant]
     Active Substance: PSEUDOEPHEDRINE HYDROCHLORIDE
     Indication: Product used for unknown indication
  240. PSEUDOEPHEDRINE HYDROCHLORIDE [Concomitant]
     Active Substance: PSEUDOEPHEDRINE HYDROCHLORIDE
  241. PSEUDOEPHEDRINE HYDROCHLORIDE [Concomitant]
     Active Substance: PSEUDOEPHEDRINE HYDROCHLORIDE
  242. PSEUDOEPHEDRINE HYDROCHLORIDE [Concomitant]
     Active Substance: PSEUDOEPHEDRINE HYDROCHLORIDE
  243. QUETIAPINE FUMARATE [Concomitant]
     Active Substance: QUETIAPINE FUMARATE
     Indication: Product used for unknown indication
  244. REACTINE [Concomitant]
     Indication: Product used for unknown indication
  245. REACTINE [Concomitant]
  246. REACTINE [Concomitant]
  247. REACTINE [Concomitant]
  248. REACTINE [Concomitant]
     Route: 048
  249. REACTINE [Concomitant]
     Route: 048
  250. REACTINE [Concomitant]
     Route: 048
  251. REACTINE [Concomitant]
     Route: 048
  252. RISEDRONATE SODIUM [Concomitant]
     Active Substance: RISEDRONATE SODIUM
     Indication: Product used for unknown indication
  253. RITUXIMAB [Concomitant]
     Active Substance: RITUXIMAB
     Indication: Rheumatoid arthritis
     Route: 042
  254. RITUXIMAB [Concomitant]
     Active Substance: RITUXIMAB
  255. RITUXIMAB [Concomitant]
     Active Substance: RITUXIMAB
     Route: 058
  256. RITUXIMAB [Concomitant]
     Active Substance: RITUXIMAB
     Route: 042
  257. RITUXIMAB [Concomitant]
     Active Substance: RITUXIMAB
     Route: 042
  258. RITUXIMAB [Concomitant]
     Active Substance: RITUXIMAB
     Route: 043
  259. STELARA [Concomitant]
     Active Substance: USTEKINUMAB
     Indication: Product used for unknown indication
     Dosage: SOLUTION SUBCUTANEOUS
     Route: 058
  260. STRATTERA [Concomitant]
     Active Substance: ATOMOXETINE HYDROCHLORIDE
     Indication: Migraine
  261. STRATTERA [Concomitant]
     Active Substance: ATOMOXETINE HYDROCHLORIDE
  262. STRATTERA [Concomitant]
     Active Substance: ATOMOXETINE HYDROCHLORIDE
  263. STRATTERA [Concomitant]
     Active Substance: ATOMOXETINE HYDROCHLORIDE
  264. STRATTERA [Concomitant]
     Active Substance: ATOMOXETINE HYDROCHLORIDE
  265. TOCILIZUMAB [Concomitant]
     Active Substance: TOCILIZUMAB
     Indication: Product used for unknown indication
  266. TOFACITINIB [Concomitant]
     Active Substance: TOFACITINIB
     Indication: Product used for unknown indication
  267. TOPICORT [Concomitant]
     Active Substance: DESOXIMETASONE
     Indication: Product used for unknown indication
  268. TOPICORT [Concomitant]
     Active Substance: DESOXIMETASONE
  269. TOPICORT [Concomitant]
     Active Substance: DESOXIMETASONE
  270. TOPIRAMATE [Concomitant]
     Active Substance: TOPIRAMATE
     Indication: Migraine
  271. TOPIRAMATE [Concomitant]
     Active Substance: TOPIRAMATE
  272. TOPIRAMATE [Concomitant]
     Active Substance: TOPIRAMATE
  273. TOPIRAMATE [Concomitant]
     Active Substance: TOPIRAMATE
  274. TOPIRAMATE [Concomitant]
     Active Substance: TOPIRAMATE
  275. TOPIRAMATE [Concomitant]
     Active Substance: TOPIRAMATE
  276. TOPIRAMATE [Concomitant]
     Active Substance: TOPIRAMATE
  277. TOPIRAMATE [Concomitant]
     Active Substance: TOPIRAMATE
  278. TOPIRAMATE [Concomitant]
     Active Substance: TOPIRAMATE
  279. TOPIRAMATE [Concomitant]
     Active Substance: TOPIRAMATE
  280. TRAZODONE [Concomitant]
     Active Substance: TRAZODONE HYDROCHLORIDE
     Indication: Product used for unknown indication
  281. TRAZODONE [Concomitant]
     Active Substance: TRAZODONE HYDROCHLORIDE
  282. TRAZODONE [Concomitant]
     Active Substance: TRAZODONE HYDROCHLORIDE
  283. TUMS [Concomitant]
     Active Substance: CALCIUM CARBONATE
     Indication: Product used for unknown indication
  284. VITAMIN C [Concomitant]
     Active Substance: ASCORBIC ACID
     Indication: Product used for unknown indication
  285. VITAMIN C [Concomitant]
     Active Substance: ASCORBIC ACID
  286. VITAMIN D [Concomitant]
     Active Substance: VITAMIN D NOS
     Indication: Product used for unknown indication
  287. VITAMIN D3 [Concomitant]
     Active Substance: CHOLECALCIFEROL
     Indication: Product used for unknown indication
  288. VITAMIN D3 [Concomitant]
     Active Substance: CHOLECALCIFEROL
  289. VITAMIN D3 [Concomitant]
     Active Substance: CHOLECALCIFEROL
  290. VITAMIN D3 [Concomitant]
     Active Substance: CHOLECALCIFEROL
  291. VITAMIN D3 [Concomitant]
     Active Substance: CHOLECALCIFEROL
  292. DICLOFENAC DIETHYLAMINE [Concomitant]
     Active Substance: DICLOFENAC DIETHYLAMINE
     Indication: Product used for unknown indication
  293. ACETAMINOPHEN\OXYCODONE HYDROCHLORIDE\OXYCODONE TEREPHTHALATE [Concomitant]
     Active Substance: ACETAMINOPHEN\OXYCODONE HYDROCHLORIDE\OXYCODONE TEREPHTHALATE
     Indication: Product used for unknown indication
  294. HYDROMORPHONE [Concomitant]
     Active Substance: HYDROMORPHONE
     Indication: Product used for unknown indication
  295. HYDROMORPHONE [Concomitant]
     Active Substance: HYDROMORPHONE
  296. HYDROMORPHONE [Concomitant]
     Active Substance: HYDROMORPHONE
     Dosage: 121.0  DAYS
  297. HYDROMORPHONE [Concomitant]
     Active Substance: HYDROMORPHONE
     Dosage: 121.0  DAYS
  298. HYDROMORPHONE [Concomitant]
     Active Substance: HYDROMORPHONE
  299. HYDROMORPHONE [Concomitant]
     Active Substance: HYDROMORPHONE
     Dosage: 121.0  DAYS
  300. HYDROMORPHONE [Concomitant]
     Active Substance: HYDROMORPHONE
  301. MINERALS\VITAMINS [Concomitant]
     Active Substance: MINERALS\VITAMINS
     Indication: Product used for unknown indication
  302. ERGOCALCIFEROL [Concomitant]
     Active Substance: ERGOCALCIFEROL
     Indication: Product used for unknown indication
  303. METHYLPREDNISOLONE ACETATE [Concomitant]
     Active Substance: METHYLPREDNISOLONE ACETATE
     Indication: Product used for unknown indication
  304. PAROXETINE HYDROCHLORIDE [Concomitant]
     Active Substance: PAROXETINE HYDROCHLORIDE
     Indication: Product used for unknown indication

REACTIONS (58)
  - Hospitalisation [Unknown]
  - Adverse event [Unknown]
  - C-reactive protein abnormal [Unknown]
  - C-reactive protein increased [Unknown]
  - Chest pain [Unknown]
  - Condition aggravated [Unknown]
  - Confusional state [Unknown]
  - Contusion [Unknown]
  - Crohn^s disease [Unknown]
  - Decreased appetite [Unknown]
  - Deep vein thrombosis postoperative [Unknown]
  - Delirium [Unknown]
  - Depression [Unknown]
  - Diarrhoea [Unknown]
  - Drug hypersensitivity [Unknown]
  - Drug ineffective for unapproved indication [Unknown]
  - Dry mouth [Unknown]
  - Duodenal ulcer perforation [Unknown]
  - Dyspnoea [Unknown]
  - Ear pain [Unknown]
  - Exostosis [Unknown]
  - Hepatic cirrhosis [Unknown]
  - Hepatic enzyme increased [Unknown]
  - Hypercholesterolaemia [Unknown]
  - Hypertension [Unknown]
  - Ill-defined disorder [Unknown]
  - Impaired healing [Unknown]
  - Infusion related reaction [Unknown]
  - Infusion site reaction [Unknown]
  - Insomnia [Unknown]
  - Irritable bowel syndrome [Unknown]
  - Joint range of motion decreased [Unknown]
  - Joint stiffness [Unknown]
  - Joint swelling [Unknown]
  - Laryngitis [Unknown]
  - Lupus-like syndrome [Unknown]
  - Migraine [Unknown]
  - Off label use [Unknown]
  - Pericarditis [Unknown]
  - Prescribed overdose [Unknown]
  - Prescribed underdose [Unknown]
  - Product quality issue [Unknown]
  - Product use issue [Unknown]
  - Rheumatoid factor positive [Unknown]
  - Swollen joint count increased [Unknown]
  - Therapeutic product effect decreased [Unknown]
  - Therapeutic product effect incomplete [Unknown]
  - Treatment failure [Unknown]
  - Weight increased [Unknown]
  - Wheezing [Unknown]
  - Wound infection [Unknown]
  - Wound [Unknown]
  - X-ray abnormal [Unknown]
  - Hypoaesthesia [Unknown]
  - Memory impairment [Unknown]
  - Pain [Unknown]
  - Paraesthesia [Unknown]
  - Taste disorder [Unknown]
